FAERS Safety Report 8793537 (Version 1)
Quarter: 2012Q4

REPORT INFORMATION
  Report Type: 
  Country: BD (occurrence: BD)
  Receive Date: 20120918
  Receipt Date: 20120918
  Transmission Date: 20130627
  Serious: Yes (Death, Other)
  Sender: FDA-Public Use
  Company Number: PHHY2006BD009729

PATIENT
  Sex: Female

DRUGS (1)
  1. GLIVEC [Suspect]
     Dates: start: 20030826

REACTIONS (7)
  - Hypovolaemic shock [Fatal]
  - Diarrhoea [Unknown]
  - Thrombocytopenia [Unknown]
  - Leukocytosis [Unknown]
  - Thrombocytosis [Unknown]
  - Anisocytosis [Unknown]
  - Microcytosis [Unknown]
